FAERS Safety Report 19728026 (Version 1)
Quarter: 2021Q3

REPORT INFORMATION
  Report Type: Spontaneous
  Country: GB (occurrence: GB)
  Receive Date: 20210820
  Receipt Date: 20210820
  Transmission Date: 20211014
  Serious: Yes (Other)
  Sender: FDA-Public Use
  Company Number: GB-MYLANLABS-2021M1052855

PATIENT
  Age: 79 Year
  Sex: Male
  Weight: 89 kg

DRUGS (2)
  1. SERTRALINE MYLAN [Suspect]
     Active Substance: SERTRALINE HYDROCHLORIDE
     Indication: DEPRESSION
     Dosage: 50 MILLIGRAM
     Route: 048
     Dates: start: 20210619
  2. FELODIPIN [Concomitant]
     Active Substance: FELODIPINE
     Dosage: UNK

REACTIONS (4)
  - Abdominal discomfort [Not Recovered/Not Resolved]
  - Diarrhoea [Unknown]
  - Colitis microscopic [Not Recovered/Not Resolved]
  - Change of bowel habit [Not Recovered/Not Resolved]

NARRATIVE: CASE EVENT DATE: 20210619
